FAERS Safety Report 17804954 (Version 2)
Quarter: 2020Q2

REPORT INFORMATION
  Report Type: Report from Study
  Country: US (occurrence: US)
  Receive Date: 20200520
  Receipt Date: 20200622
  Transmission Date: 20200714
  Serious: Yes (Hospitalization)
  Sender: FDA-Public Use
  Company Number: US-ROCHE-2432789

PATIENT
  Age: 71 Year
  Sex: Male
  Weight: 81.6 kg

DRUGS (22)
  1. ASPIRIN [ACETYLSALICYLIC ACID] [Concomitant]
     Active Substance: ASPIRIN
  2. TRESIBA [Concomitant]
     Active Substance: INSULIN DEGLUDEC
  3. GLUCOPHAGE [METFORMIN] [Concomitant]
  4. GLYCERINE [Concomitant]
     Active Substance: GLYCERIN
  5. TAMSULOSIN [Concomitant]
     Active Substance: TAMSULOSIN
  6. ULTRAM [Concomitant]
     Active Substance: TRAMADOL HYDROCHLORIDE
  7. ZOFRAN [Concomitant]
     Active Substance: ONDANSETRON HYDROCHLORIDE
  8. AV PHOS 250 NEUTRAL [Concomitant]
  9. ADVIL [IBUPROFEN] [Concomitant]
     Active Substance: IBUPROFEN
  10. NOVOLOG [Concomitant]
     Active Substance: INSULIN ASPART
  11. XGEVA [Concomitant]
     Active Substance: DENOSUMAB
  12. PERI-COLACE [DOCUSATE SODIUM;SENNOSIDE A+B] [Concomitant]
  13. ATEZOLIZUMAB. [Suspect]
     Active Substance: ATEZOLIZUMAB
     Indication: HORMONE-REFRACTORY PROSTATE CANCER
     Route: 042
     Dates: start: 20190912
  14. XALATAN [Concomitant]
     Active Substance: LATANOPROST
  15. LIDODERM [Concomitant]
     Active Substance: LIDOCAINE
  16. ADALAT [Concomitant]
     Active Substance: NIFEDIPINE
  17. LOSARTAN. [Concomitant]
     Active Substance: LOSARTAN
  18. CABOZANTINIB [Suspect]
     Active Substance: CABOZANTINIB
     Indication: HORMONE-REFRACTORY PROSTATE CANCER
     Dosage: MOST RECENT DOSE ON 19/SEP/2019?ON 26/SEP/20219, ORAL CABOZANTINIB 40 MG ONCE PER DAY WAS RESUMED
     Route: 048
     Dates: start: 20190912
  19. LIPITOR [Concomitant]
     Active Substance: ATORVASTATIN CALCIUM
  20. COSOPT [Concomitant]
     Active Substance: DORZOLAMIDE HYDROCHLORIDE\TIMOLOL MALEATE
  21. LACTULOSE. [Concomitant]
     Active Substance: LACTULOSE
  22. SODIUM PHOSPHATE MONOBASIC [Concomitant]
     Active Substance: SODIUM PHOSPHATE, MONOBASIC

REACTIONS (6)
  - Metastases to adrenals [Recovered/Resolved]
  - Hyponatraemia [Recovered/Resolved with Sequelae]
  - Constipation [Recovered/Resolved]
  - Anaemia [Recovered/Resolved]
  - Hypomagnesaemia [Recovered/Resolved]
  - Hypophosphataemia [Recovered/Resolved]

NARRATIVE: CASE EVENT DATE: 20190919
